FAERS Safety Report 9953759 (Version 1)
Quarter: 2014Q1

REPORT INFORMATION
  Report Type: Spontaneous
  Country: GB (occurrence: GB)
  Receive Date: 20140304
  Receipt Date: 20140304
  Transmission Date: 20141002
  Serious: Yes (Other)
  Sender: FDA-Public Use
  Company Number: GB-PFIZER INC-2014056774

PATIENT
  Age: 67 Year
  Sex: Male
  Weight: 104.5 kg

DRUGS (13)
  1. EPLERENONE [Suspect]
     Indication: CARDIAC FAILURE CONGESTIVE
     Dosage: 25 MG, UNK
     Route: 048
  2. SITAGLIPTIN [Interacting]
     Indication: TYPE 2 DIABETES MELLITUS
     Dosage: 100 MG, UNK
     Route: 048
     Dates: start: 20140106
  3. DIGOXIN [Concomitant]
     Indication: CARDIAC FAILURE CONGESTIVE
     Dosage: 62.5 UG, UNK
     Route: 048
  4. RAMIPRIL [Concomitant]
     Indication: CARDIAC FAILURE CONGESTIVE
     Dosage: 1.25 MG, UNK
     Route: 048
  5. NEBIVOLOL [Concomitant]
     Indication: CARDIAC FAILURE CONGESTIVE
     Dosage: 5 MG, UNK
     Route: 048
  6. FUROSEMIDE [Concomitant]
     Indication: CARDIAC FAILURE CONGESTIVE
     Dosage: 80 MG, UNK
     Route: 048
  7. SIMVASTATIN [Concomitant]
     Dosage: 40 MG, UNK
  8. CALCITRIOL [Concomitant]
     Dosage: 250 UG, UNK
  9. ALLOPURINOL [Concomitant]
     Dosage: 100 MG, UNK
  10. TEMAZEPAM [Concomitant]
     Dosage: 10 MG, UNK
  11. METFORMIN [Concomitant]
     Dosage: 500 MG, 2X/DAY
  12. GLICLAZIDE [Concomitant]
     Dosage: 160 MG, 2X/DAY
  13. OMEPRAZOLE [Concomitant]
     Dosage: 20 MG, 2X/DAY

REACTIONS (6)
  - Potentiating drug interaction [Unknown]
  - Breast induration [Not Recovered/Not Resolved]
  - Breast swelling [Not Recovered/Not Resolved]
  - Breast pain [Not Recovered/Not Resolved]
  - Breast tenderness [Not Recovered/Not Resolved]
  - Erythema [Not Recovered/Not Resolved]
